FAERS Safety Report 8792846 (Version 1)
Quarter: 2012Q4

REPORT INFORMATION
  Report Type: 
  Country: CA (occurrence: CA)
  Receive Date: 20120918
  Receipt Date: 20120918
  Transmission Date: 20130627
  Serious: Yes (Life-Threatening, Hospitalization, Other)
  Sender: FDA-Public Use
  Company Number: CA-ELI_LILLY_AND_COMPANY-CA201209002289

PATIENT
  Age: 84 Year
  Sex: Female

DRUGS (7)
  1. FORTEO [Suspect]
     Indication: OSTEOPOROSIS
     Dosage: 20 ug, qd
     Route: 058
     Dates: start: 20110805, end: 20120630
  2. TYLENOL                                 /SCH/ [Concomitant]
  3. VITAMIN D [Concomitant]
  4. CALCIUM [Concomitant]
  5. SENNA [Concomitant]
  6. PANTOPRAZOLE [Concomitant]
  7. DOCUSATE SODIUM [Concomitant]

REACTIONS (3)
  - Cardiac arrest [Recovered/Resolved]
  - Volvulus [Unknown]
  - Hospitalisation [Unknown]
